FAERS Safety Report 18479351 (Version 1)
Quarter: 2020Q4

REPORT INFORMATION
  Report Type: Spontaneous
  Country: CH (occurrence: CH)
  Receive Date: 20201109
  Receipt Date: 20201109
  Transmission Date: 20210114
  Serious: Yes (Hospitalization)
  Sender: FDA-Public Use
  Company Number: CH-TEVA-2020-CH-1847432

PATIENT
  Age: 68 Year
  Sex: Female

DRUGS (3)
  1. CARBOPLATIN. [Suspect]
     Active Substance: CARBOPLATIN
     Route: 048
     Dates: start: 20200918, end: 20201018
  2. ALIMTA [Suspect]
     Active Substance: PEMETREXED DISODIUM
     Route: 048
     Dates: start: 20200918, end: 20201018
  3. KEYTRUDA [Suspect]
     Active Substance: PEMBROLIZUMAB
     Route: 048
     Dates: start: 20200918, end: 20201018

REACTIONS (2)
  - Pyrexia [Recovering/Resolving]
  - Liver injury [Recovering/Resolving]

NARRATIVE: CASE EVENT DATE: 20201002
